FAERS Safety Report 4634446-3 (Version None)
Quarter: 2005Q2

REPORT INFORMATION
  Report Type: 
  Country: None (occurrence: None)
  Receive Date: 20050411
  Receipt Date: 20050406
  Transmission Date: 20051028
  Serious: Yes (Hospitalization)
  Sender: FDA-Public Use
  Company Number: 2005-127148-NL

PATIENT
  Age: 27 Year
  Sex: Male

DRUGS (2)
  1. MIRTAZAPINE [Suspect]
     Indication: DEPRESSION
     Dosage: 45 MG
     Route: 048
     Dates: end: 20050301
  2. MIRTAZAPINE [Suspect]
     Indication: DEPRESSION
     Dosage: 45 MG
     Route: 048
     Dates: start: 20050301

REACTIONS (6)
  - COORDINATION ABNORMAL [None]
  - DIFFICULTY IN WALKING [None]
  - DIZZINESS [None]
  - FATIGUE [None]
  - GENERAL PHYSICAL HEALTH DETERIORATION [None]
  - MUSCULOSKELETAL STIFFNESS [None]
